FAERS Safety Report 8525424-2 (Version None)
Quarter: 2012Q3

REPORT INFORMATION
  Report Type: 
  Country: None (occurrence: None)
  Receive Date: 20120720
  Receipt Date: 20120716
  Transmission Date: 20120928
  Serious: Yes (Hospitalization, Other)
  Sender: FDA-Public Use
  Company Number: US-ASTRAZENECA-2011SE30755

PATIENT
  Age: 41 Year
  Sex: Female
  Weight: 113.4 kg

DRUGS (10)
  1. SEROQUEL [Suspect]
     Indication: BIPOLAR DISORDER
     Route: 048
     Dates: start: 19980101, end: 20000101
  2. SEROQUEL [Suspect]
     Route: 048
  3. NEXIUM [Suspect]
     Indication: BARRETT'S OESOPHAGUS
     Route: 048
  4. SEROQUEL [Suspect]
     Route: 048
  5. LAMICTAL [Concomitant]
     Indication: BIPOLAR DISORDER
  6. CYMBALTA [Concomitant]
     Indication: BIPOLAR DISORDER
  7. RISPERDAL [Concomitant]
  8. SEROQUEL [Suspect]
     Indication: MANIA
     Route: 048
     Dates: start: 19980101, end: 20000101
  9. TRAZODONE HYDROCHLORIDE [Concomitant]
     Indication: BIPOLAR DISORDER
  10. CLONAZEPAM [Concomitant]
     Indication: ANXIETY

REACTIONS (6)
  - BIPOLAR DISORDER [None]
  - TREATMENT NONCOMPLIANCE [None]
  - UPPER LIMB FRACTURE [None]
  - FAT NECROSIS [None]
  - OFF LABEL USE [None]
  - STAB WOUND [None]
